FAERS Safety Report 9911641 (Version 2)
Quarter: 2014Q1

REPORT INFORMATION
  Report Type: Report from Study
  Country: US (occurrence: US)
  Receive Date: 20140219
  Receipt Date: 20140220
  Transmission Date: 20141002
  Serious: Yes (Death, Hospitalization)
  Sender: FDA-Public Use
  Company Number: PHEH2014US003225

PATIENT
  Sex: Female

DRUGS (6)
  1. TASIGNA [Suspect]
     Indication: CHRONIC MYELOID LEUKAEMIA
     Dosage: 300 MG, BID
     Route: 048
     Dates: start: 20140125
  2. METOPROLOL [Concomitant]
     Indication: CARDIAC FAILURE CONGESTIVE
     Dosage: 50 MG, DAILY
  3. PRADAXA [Concomitant]
     Indication: DEEP VEIN THROMBOSIS
     Dosage: 150 MG, DAILY
  4. GABAPENTIN [Concomitant]
     Indication: NEUROPATHY PERIPHERAL
     Dosage: 100 MG, DAILY
  5. SERTRALINE [Concomitant]
     Indication: DEPRESSION
     Dosage: 100 MG, DAILY
  6. ATORVASTATIN [Concomitant]
     Indication: BLOOD CHOLESTEROL INCREASED
     Dosage: 40 MG, DAILY

REACTIONS (2)
  - Blast crisis in myelogenous leukaemia [Fatal]
  - Chronic myeloid leukaemia [Fatal]
